FAERS Safety Report 7743809-9 (Version None)
Quarter: 2011Q3

REPORT INFORMATION
  Report Type: 
  Country: None (occurrence: None)
  Receive Date: 20110912
  Receipt Date: 20110830
  Transmission Date: 20111222
  Serious: Yes (Hospitalization)
  Sender: FDA-Public Use
  Company Number: US-GLAXOSMITHKLINE-A0890372A

PATIENT
  Age: 38 Year
  Sex: Male
  Weight: 127.3 kg

DRUGS (7)
  1. GLUCOPHAGE [Concomitant]
  2. AVANDIA [Suspect]
     Indication: DIABETES MELLITUS
     Route: 048
     Dates: end: 20100301
  3. ALTACE [Concomitant]
  4. INSULIN [Concomitant]
  5. ATENOLOL [Concomitant]
  6. GLYNASE [Concomitant]
  7. ASPIRIN [Concomitant]

REACTIONS (2)
  - CARDIOVASCULAR DISORDER [None]
  - MYOCARDIAL INFARCTION [None]
